FAERS Safety Report 20457598 (Version 1)
Quarter: 2022Q1

REPORT INFORMATION
  Report Type: Report from Study
  Country: FR (occurrence: FR)
  Receive Date: 20220210
  Receipt Date: 20220210
  Transmission Date: 20220423
  Serious: Yes (Hospitalization, Other)
  Sender: FDA-Public Use
  Company Number: FR-NOVARTISPH-NVSC2022FR027180

PATIENT
  Age: 60 Year
  Sex: Female
  Weight: 53 kg

DRUGS (7)
  1. MIDOSTAURIN [Suspect]
     Active Substance: MIDOSTAURIN
     Indication: Acute myeloid leukaemia
     Dosage: 25 MG
     Route: 048
     Dates: start: 20210818
  2. MIDOSTAURIN [Suspect]
     Active Substance: MIDOSTAURIN
     Dosage: 100 MG, EVERY 2 DAY/ 50 MG MORNING AND 50 MG EVENING
     Route: 048
     Dates: start: 20210922
  3. CYTARABINE [Suspect]
     Active Substance: CYTARABINE
     Indication: Acute myeloid leukaemia
     Dosage: UNK
     Route: 041
     Dates: start: 20210818, end: 20210822
  4. CYTARABINE [Suspect]
     Active Substance: CYTARABINE
     Dosage: 4610 MG, EVERY 2 DAYS/ 3 G/M2/12H
     Route: 041
     Dates: start: 20210915, end: 20210919
  5. VORICONAZOLE [Suspect]
     Active Substance: VORICONAZOLE
     Indication: Product used for unknown indication
     Dosage: 200 MG
     Route: 065
     Dates: start: 20210810, end: 20211025
  6. VORICONAZOLE [Suspect]
     Active Substance: VORICONAZOLE
     Dosage: 200 MG
     Route: 065
     Dates: start: 20211109
  7. VFEND [Concomitant]
     Active Substance: VORICONAZOLE
     Indication: Product used for unknown indication
     Dosage: 200 MG, EVERY 2 DAY
     Route: 048
     Dates: start: 20211109

REACTIONS (2)
  - Hepatic cytolysis [Recovered/Resolved]
  - Myocarditis [Not Recovered/Not Resolved]

NARRATIVE: CASE EVENT DATE: 20210827
